FAERS Safety Report 20979975 (Version 4)
Quarter: 2022Q4

REPORT INFORMATION
  Report Type: Report from Study
  Country: US (occurrence: US)
  Receive Date: 20220620
  Receipt Date: 20221010
  Transmission Date: 20230112
  Serious: No
  Sender: FDA-Public Use
  Company Number: US-NOVARTISTESTPH-NVSC2022US140157

PATIENT
  Sex: Female

DRUGS (1)
  1. KESIMPTA [Suspect]
     Active Substance: OFATUMUMAB
     Indication: Relapsing-remitting multiple sclerosis
     Dosage: 20 MG, QMO
     Route: 058
     Dates: start: 20220604

REACTIONS (6)
  - Headache [Recovered/Resolved]
  - Upper respiratory tract infection [Recovering/Resolving]
  - Pain [Unknown]
  - Fall [Unknown]
  - Ligament sprain [Unknown]
  - Inappropriate schedule of product administration [Unknown]
